FAERS Safety Report 6781721-2 (Version None)
Quarter: 2010Q2

REPORT INFORMATION
  Report Type: 
  Country: None (occurrence: None)
  Receive Date: 20100618
  Receipt Date: 20100618
  Transmission Date: 20101027
  Serious: Yes (Other)
  Sender: FDA-Public Use
  Company Number: None

PATIENT
  Sex: Female
  Weight: 54.4316 kg

DRUGS (2)
  1. WELLBUTRIN [Suspect]
     Indication: DEPRESSION
     Dosage: 150 MG QD PO
     Route: 048
     Dates: start: 20080222, end: 20080806
  2. WELLBUTRIN [Suspect]
     Indication: POST-TRAUMATIC STRESS DISORDER
     Dosage: 150 MG QD PO
     Route: 048
     Dates: start: 20080222, end: 20080806

REACTIONS (3)
  - ACNE CYSTIC [None]
  - DRUG EFFECT DECREASED [None]
  - IRRITABILITY [None]
